FAERS Safety Report 6681100-2 (Version None)
Quarter: 2010Q2

REPORT INFORMATION
  Report Type: 
  Country: None (occurrence: None)
  Receive Date: 20100412
  Receipt Date: 20100402
  Transmission Date: 20101027
  Serious: Yes (Other)
  Sender: FDA-Public Use
  Company Number: SPV1-2010-00629

PATIENT
  Age: 68 Year
  Sex: Male

DRUGS (27)
  1. FOSRENOL [Suspect]
     Indication: HYPERPHOSPHATAEMIA
     Dosage: ORAL
     Route: 048
     Dates: start: 20090930
  2. CORINAE L (NIFEDIPINE) [Concomitant]
  3. DEPAS (ETIZOLAM) [Concomitant]
  4. VEGETAMIN B [Concomitant]
  5. FERROMIA (FERROUS CITRATE) [Concomitant]
  6. COMESGEN (MECOBALAMIN) [Concomitant]
  7. PAXIL [Concomitant]
  8. CARVEDILOL [Concomitant]
  9. PLETAL [Concomitant]
  10. LANSOPRAZOLE [Concomitant]
  11. YODEL (SENNA ALEXANDRINA) [Concomitant]
  12. DOXAZOSIN MESYLATE [Concomitant]
  13. ISOSORBIDE DINITRATE [Concomitant]
  14. LIPLE (ALPROSTADIL) [Concomitant]
  15. NESP (NOVEL ERYTHROPOIESIS STIMULATING PROTEIN) [Concomitant]
  16. VEGETAMIN B (CHLORPROMAZINE HYDROCHLORIDE, PHENOBARBITAL, PROMETHAZINE [Concomitant]
  17. FERROMIA /00023516/ (FERROUS CITRATE) [Concomitant]
  18. COMESGEN (MECOBALAMIN) [Concomitant]
  19. PAXIL [Concomitant]
  20. CARVEDILOL [Concomitant]
  21. PLETAL [Concomitant]
  22. LANSOPRAZOLE [Concomitant]
  23. YODEL (SENNA ALEXANDRINA) [Concomitant]
  24. DOXAZOSIN MESYLATE [Concomitant]
  25. ISOSORBIDE DINITRATE [Concomitant]
  26. LIPLE (ALPROSTADIL) [Concomitant]
  27. NESP (DARBEPOETIN ALFA) [Concomitant]

REACTIONS (1)
  - ILEUS [None]
